FAERS Safety Report 17172012 (Version 1)
Quarter: 2019Q4

REPORT INFORMATION
  Report Type: Spontaneous
  Country: NL (occurrence: FR)
  Receive Date: 20191219
  Receipt Date: 20191219
  Transmission Date: 20200122
  Serious: Yes (Hospitalization)
  Sender: FDA-Public Use
  Company Number: FR-BAYER-2019-225008

PATIENT
  Age: 57 Year
  Sex: Male
  Weight: 102 kg

DRUGS (1)
  1. CIFLOX [Suspect]
     Active Substance: CIPROFLOXACIN
     Indication: URINARY TRACT INFECTION
     Dosage: 1000 MG, QD
     Route: 048
     Dates: start: 20191106, end: 20191109

REACTIONS (2)
  - Condition aggravated [Recovered/Resolved]
  - Thrombocytopenia [Not Recovered/Not Resolved]

NARRATIVE: CASE EVENT DATE: 20191109
